FAERS Safety Report 4996397-4 (Version None)
Quarter: 2006Q2

REPORT INFORMATION
  Report Type: 
  Country: None (occurrence: None)
  Receive Date: 20060509
  Receipt Date: 20060503
  Transmission Date: 20061013
  Serious: Yes (Life-Threatening, Hospitalization)
  Sender: FDA-Public Use
  Company Number: PR-AVENTIS-200614733GDDC

PATIENT
  Age: 68 Year
  Sex: Female

DRUGS (6)
  1. TAXOTERE [Suspect]
     Indication: OVARIAN CANCER
     Route: 042
     Dates: start: 20060427, end: 20060427
  2. CARBOPLATIN [Suspect]
     Indication: OVARIAN CANCER
     Route: 042
  3. DEXAMETHASONE [Concomitant]
     Dosage: DOSE: UJK
  4. TAGAMET [Concomitant]
     Dosage: DOSE: UNK
  5. BENADRYL [Concomitant]
     Dosage: DOSE: UNK
  6. ANZEMET [Concomitant]
     Dosage: DOSE: UNK

REACTIONS (3)
  - ACUTE CORONARY SYNDROME [None]
  - FEBRILE NEUTROPENIA [None]
  - RESPIRATORY ACIDOSIS [None]
